FAERS Safety Report 15818951 (Version 2)
Quarter: 2019Q1

REPORT INFORMATION
  Report Type: Spontaneous
  Country: AR (occurrence: AR)
  Receive Date: 20190114
  Receipt Date: 20190120
  Transmission Date: 20190417
  Serious: Yes (Hospitalization, Other)
  Sender: FDA-Public Use
  Company Number: AR-AMGEN-ARGSP2019004405

PATIENT
  Age: 62 Year
  Sex: Female

DRUGS (1)
  1. ENBREL [Suspect]
     Active Substance: ETANERCEPT
     Indication: RHEUMATOID ARTHRITIS
     Dosage: 50 MG, CYCLIC EVERY 15 DAYS
     Route: 065
     Dates: start: 20100902

REACTIONS (3)
  - Product use issue [Unknown]
  - Blindness unilateral [Unknown]
  - Joint injury [Unknown]

NARRATIVE: CASE EVENT DATE: 20100902
